FAERS Safety Report 7770916-7 (Version None)
Quarter: 2011Q3

REPORT INFORMATION
  Report Type: 
  Country: None (occurrence: None)
  Receive Date: 20110922
  Receipt Date: 20110322
  Transmission Date: 20111222
  Serious: No
  Sender: FDA-Public Use
  Company Number: US-ASTRAZENECA-2009SE15834

PATIENT
  Age: 51 Year
  Sex: Female
  Weight: 95.3 kg

DRUGS (5)
  1. SEROQUEL [Suspect]
     Indication: BIPOLAR DISORDER
     Route: 048
  2. ADVAIR DISKUS 100/50 [Concomitant]
     Indication: ASTHMA
  3. SEROQUEL [Suspect]
     Route: 048
  4. PROAIR HFA [Concomitant]
     Indication: ASTHMA
  5. THEOPHYLLINE [Concomitant]
     Indication: ASTHMA

REACTIONS (5)
  - EATING DISORDER [None]
  - MANIA [None]
  - DRUG DOSE OMISSION [None]
  - ABNORMAL WEIGHT GAIN [None]
  - INSOMNIA [None]
